FAERS Safety Report 12572199 (Version 2)
Quarter: 2018Q2

REPORT INFORMATION
  Report Type: Report from Study
  Country: None (occurrence: CA)
  Receive Date: 20160719
  Receipt Date: 20180515
  Transmission Date: 20180711
  Serious: Yes (Hospitalization, Other)
  Sender: FDA-Public Use
  Company Number: CA-ABBVIE-16K-028-1675938-00

PATIENT
  Age: 70 Year
  Sex: Female
  Weight: 49.7 kg

DRUGS (3)
  1. HUMIRA [Suspect]
     Active Substance: ADALIMUMAB
     Indication: PRODUCT USED FOR UNKNOWN INDICATION
     Dosage: UNSPECIFIED DOSAGE FORM
     Route: 058
  2. REMICADE [Suspect]
     Active Substance: INFLIXIMAB
     Indication: CROHN^S DISEASE
     Dosage: DOSAGE FORM: LYOPHILIZED POWDER
     Route: 042
     Dates: start: 20110704, end: 20160205
  3. REMICADE [Suspect]
     Active Substance: INFLIXIMAB
     Route: 042

REACTIONS (3)
  - Pancreatitis [Not Recovered/Not Resolved]
  - Dyspepsia [Not Recovered/Not Resolved]
  - Cholecystectomy [Not Recovered/Not Resolved]
